FAERS Safety Report 5207623-0 (Version None)
Quarter: 2007Q1

REPORT INFORMATION
  Report Type: 
  Country: None (occurrence: None)
  Receive Date: 20070112
  Receipt Date: 20070105
  Transmission Date: 20070707
  Serious: Yes (Other)
  Sender: FDA-Public Use
  Company Number: US-PFIZER INC-2006081282

PATIENT
  Sex: Male

DRUGS (6)
  1. VIAGRA [Suspect]
     Indication: ERECTILE DYSFUNCTION
  2. ANTIHYPERTENSIVES [Concomitant]
  3. TAMSULOSIN HCL [Concomitant]
  4. HYDROCHLOROTHIAZIDE [Concomitant]
  5. ATENOLOL [Concomitant]
  6. PROTONIX [Concomitant]

REACTIONS (4)
  - DRUG INEFFECTIVE [None]
  - DYSURIA [None]
  - PROSTATIC OPERATION [None]
  - URETHRAL OBSTRUCTION [None]
